FAERS Safety Report 4416045-1 (Version None)
Quarter: 2004Q3

REPORT INFORMATION
  Report Type: 
  Country: None (occurrence: None)
  Receive Date: 20040802
  Receipt Date: 20040719
  Transmission Date: 20050211
  Serious: Yes (Hospitalization, Other)
  Sender: FDA-Public Use
  Company Number: 2004045091

PATIENT
  Age: 56 Year
  Sex: Male
  Weight: 31.7518 kg

DRUGS (2)
  1. RELPAX [Suspect]
     Indication: MIGRAINE
     Dosage: 80 MG (40 MG, 2 IN 1 D), ORAL
     Route: 048
     Dates: start: 20011010
  2. CODEINE PHOSPHATE AND ACETAMINOPHEN [Suspect]
     Indication: MIGRAINE

REACTIONS (6)
  - DRUG ABUSER [None]
  - DRUG INTERACTION [None]
  - HYPOAESTHESIA [None]
  - PALPITATIONS [None]
  - TREMOR [None]
  - VOMITING [None]
